FAERS Safety Report 7505807-X (Version None)
Quarter: 2011Q2

REPORT INFORMATION
  Report Type: 
  Country: None (occurrence: None)
  Receive Date: 20110526
  Receipt Date: 20110513
  Transmission Date: 20111010
  Serious: Yes (Hospitalization, Other)
  Sender: FDA-Public Use
  Company Number: US-BAYER-2011-001433

PATIENT
  Age: 17 Year
  Sex: Female
  Weight: 63.492 kg

DRUGS (8)
  1. YASMIN [Suspect]
  2. CEFADROXIL [Concomitant]
     Dosage: UNK
     Dates: start: 20021001
  3. SULFAMETHOXAZOLE [Concomitant]
     Dosage: UNK
     Dates: start: 20010401
  4. YASMIN [Suspect]
     Indication: PREMENSTRUAL SYNDROME
     Dosage: UNK
     Route: 048
     Dates: start: 20050901, end: 20051101
  5. TRIMETHOPRIM [Concomitant]
     Dosage: UNK
     Dates: start: 20010401
  6. YASMIN [Suspect]
     Indication: MENSTRUAL CYCLE MANAGEMENT
  7. AMOXICILLIN [Concomitant]
     Dosage: UNK
     Dates: start: 20010201
  8. AMOXICILLIN [Concomitant]
     Dosage: UNK
     Dates: start: 20050901

REACTIONS (8)
  - PAIN [None]
  - INJURY [None]
  - DYSPNOEA [None]
  - ANXIETY [None]
  - PULMONARY EMBOLISM [None]
  - COSTOCHONDRITIS [None]
  - PNEUMONIA [None]
  - CHEST PAIN [None]
